FAERS Safety Report 21503980 (Version 2)
Quarter: 2022Q4

REPORT INFORMATION
  Report Type: Spontaneous
  Country: US (occurrence: None)
  Receive Date: 20221025
  Receipt Date: 20221207
  Transmission Date: 20230113
  Serious: Yes (Other)
  Sender: FDA-Public Use
  Company Number: 2022A348728

PATIENT

DRUGS (2)
  1. IMFINZI [Suspect]
     Active Substance: DURVALUMAB
     Route: 058
  2. GEM-CIS [Concomitant]

REACTIONS (2)
  - Renal failure [Recovered/Resolved]
  - Tubulointerstitial nephritis [Recovered/Resolved]
